FAERS Safety Report 24770916 (Version 1)
Quarter: 2024Q4

REPORT INFORMATION
  Report Type: Report from Study
  Country: US (occurrence: US)
  Receive Date: 20241224
  Receipt Date: 20241224
  Transmission Date: 20250114
  Serious: Yes (Other)
  Sender: RECORDATI
  Company Number: US-RECORDATI RARE DISEASE INC.-2024010002

PATIENT

DRUGS (8)
  1. ISTURISA [Suspect]
     Active Substance: OSILODROSTAT PHOSPHATE
     Indication: Cushing^s syndrome
     Dosage: 2.5 MILLIGRAM, BID
     Route: 048
     Dates: start: 20240801, end: 2024
  2. ISTURISA [Suspect]
     Active Substance: OSILODROSTAT PHOSPHATE
     Dosage: 10 MILLIGRAM, BID
     Route: 048
     Dates: start: 2024, end: 20241022
  3. ISTURISA [Suspect]
     Active Substance: OSILODROSTAT PHOSPHATE
     Dosage: 7.5 MILLIGRAM, QD
     Route: 048
     Dates: start: 2024, end: 20241212
  4. ISTURISA [Suspect]
     Active Substance: OSILODROSTAT PHOSPHATE
     Dosage: 15 MILLIGRAM, QD
     Route: 048
     Dates: start: 202412
  5. HERBALS\WITHANIA SOMNIFERA ROOT [Concomitant]
     Active Substance: HERBALS\WITHANIA SOMNIFERA ROOT
     Indication: Product used for unknown indication
     Dosage: 125 MILLIGRAM, QD, CAPSULE
     Route: 048
     Dates: start: 20230802
  6. HYDROCORTISONE [Concomitant]
     Active Substance: HYDROCORTISONE
     Indication: Product used for unknown indication
     Dosage: 10 MILLIGRAM, BID, TABLET
     Route: 048
     Dates: start: 20241112
  7. RECORLEV [Concomitant]
     Active Substance: LEVOKETOCONAZOLE
     Indication: Product used for unknown indication
     Dosage: 150 MILLIGRAM, BID, TABLET
     Route: 048
     Dates: start: 20241104
  8. VITAMIN D3 [Concomitant]
     Active Substance: CHOLECALCIFEROL
     Indication: Product used for unknown indication
     Dosage: 50 MICROGRAM, QD (SUPER STRENGTH, ORAL CAPS)
     Route: 048
     Dates: start: 20230802

REACTIONS (1)
  - Nephrolithiasis [Not Recovered/Not Resolved]

NARRATIVE: CASE EVENT DATE: 20241214
